FAERS Safety Report 4576538-3 (Version None)
Quarter: 2005Q1

REPORT INFORMATION
  Report Type: 
  Country: None (occurrence: None)
  Receive Date: 20050119
  Receipt Date: 20040312
  Transmission Date: 20050727
  Serious: Yes (Other)
  Sender: FDA-Public Use
  Company Number: A03200400783

PATIENT
  Age: 68 Year
  Sex: Male
  Weight: 68.0396 kg

DRUGS (4)
  1. PLAVIX [Suspect]
     Indication: CAROTID ARTERY DISEASE
     Dosage: 75 MG QD - ORAL
     Route: 048
     Dates: start: 20040201, end: 20040101
  2. ACETYLSALICYLIC ACID [Concomitant]
  3. LORAZEPAM [Concomitant]
  4. ACETAMINOPHEN + ASA [Concomitant]

REACTIONS (3)
  - FEELING ABNORMAL [None]
  - LOSS OF CONSCIOUSNESS [None]
  - MEMORY IMPAIRMENT [None]
